FAERS Safety Report 24898466 (Version 2)
Quarter: 2025Q1

REPORT INFORMATION
  Report Type: Spontaneous
  Country: CZ (occurrence: CZ)
  Receive Date: 20250129
  Receipt Date: 20250204
  Transmission Date: 20250409
  Serious: Yes (Other)
  Sender: AMGEN
  Company Number: CZ-PFIZER INC-202500016929

PATIENT
  Age: 63 Year
  Sex: Male
  Weight: 73 kg

DRUGS (9)
  1. ETANERCEPT [Suspect]
     Active Substance: ETANERCEPT
     Indication: Rheumatoid arthritis
     Route: 065
     Dates: start: 202212, end: 202311
  2. MEDROL [Concomitant]
     Active Substance: METHYLPREDNISOLONE
     Indication: Rheumatoid arthritis
     Dosage: 4 MG, DAILY
     Route: 065
     Dates: end: 202212
  3. MEDROL [Concomitant]
     Active Substance: METHYLPREDNISOLONE
     Dosage: 1 MG, DAILY
     Route: 065
     Dates: start: 202212
  4. PANTOPRAZOLE SODIUM [Concomitant]
     Active Substance: PANTOPRAZOLE SODIUM
     Indication: Product used for unknown indication
     Dosage: 40 MG, 1X/DAY
     Route: 065
  5. Trexan [Concomitant]
     Indication: Rheumatoid arthritis
     Dosage: 5 MG, WEEKLY
     Route: 065
  6. Trexan [Concomitant]
     Dosage: 7.5 MG, WEEKLY
     Route: 065
  7. FOLIC ACID [Concomitant]
     Active Substance: FOLIC ACID
     Indication: Product used for unknown indication
     Dosage: 1 DF, WEEKLY
     Route: 065
  8. CALCIUM CARBONATE\CHOLECALCIFEROL [Concomitant]
     Active Substance: CALCIUM CARBONATE\CHOLECALCIFEROL
     Indication: Product used for unknown indication
     Dosage: 1 DF, 2X/DAY
     Route: 065
  9. Vigantol [Concomitant]
     Indication: Product used for unknown indication
     Dosage: 7 DROP, WEEKLY
     Route: 065

REACTIONS (5)
  - Bursitis [Recovered/Resolved]
  - Haematuria [Recovered/Resolved]
  - C-reactive protein increased [Unknown]
  - Cellulitis [Recovered/Resolved]
  - Urinary tract infection [Recovered/Resolved]

NARRATIVE: CASE EVENT DATE: 20230101
